FAERS Safety Report 6579349-2 (Version None)
Quarter: 2010Q1

REPORT INFORMATION
  Report Type: 
  Country: None (occurrence: None)
  Receive Date: 20100209
  Receipt Date: 20100209
  Transmission Date: 20100710
  Serious: Yes (Disabling)
  Sender: FDA-Public Use
  Company Number: None

PATIENT
  Age: 21 Year
  Sex: Male

DRUGS (1)
  1. VANCOMYCIN [Suspect]
     Dosage: 1500MG IVPB Q8H

REACTIONS (5)
  - BLOOD CREATININE INCREASED [None]
  - CONVULSION [None]
  - DRUG LEVEL INCREASED [None]
  - DYSPNOEA [None]
  - PYREXIA [None]
